FAERS Safety Report 12241620 (Version 1)
Quarter: 2016Q2

REPORT INFORMATION
  Report Type: Spontaneous
  Country: ES (occurrence: ES)
  Receive Date: 20160406
  Receipt Date: 20160406
  Transmission Date: 20160815
  Serious: Yes (Other)
  Sender: FDA-Public Use
  Company Number: ES-AUROBINDO-AUR-APL-2016-04242

PATIENT
  Age: 84 Year
  Sex: Male

DRUGS (6)
  1. TAMSULOSIN [Concomitant]
     Active Substance: TAMSULOSIN
     Indication: PRODUCT USED FOR UNKNOWN INDICATION
     Dosage: 0.4 MG, UNK
  2. OLANZAPINE 2.5MG [Suspect]
     Active Substance: OLANZAPINE
     Indication: PRODUCT USED FOR UNKNOWN INDICATION
     Dosage: 2.5 MG/12 H
     Route: 065
  3. DONEPEZIL 10 MG [Suspect]
     Active Substance: DONEPEZIL HYDROCHLORIDE
     Indication: PRODUCT USED FOR UNKNOWN INDICATION
     Dosage: 10 MG/24H
     Route: 065
  4. TIOTROPIUM BROMIDE [Concomitant]
     Active Substance: TIOTROPIUM BROMIDE
     Indication: PRODUCT USED FOR UNKNOWN INDICATION
     Dosage: 18 MCG: 1 INH/DAY
     Route: 065
  5. QUETIAPINE 25MG [Suspect]
     Active Substance: QUETIAPINE
     Indication: PRODUCT USED FOR UNKNOWN INDICATION
     Dosage: 25 MG, UNK
     Route: 065
  6. CLONAZEPAM. [Concomitant]
     Active Substance: CLONAZEPAM
     Indication: PRODUCT USED FOR UNKNOWN INDICATION
     Dosage: 0.124 MG, UNK
     Route: 065

REACTIONS (18)
  - Bradykinesia [Recovered/Resolved]
  - Tachycardia [Recovered/Resolved]
  - Euphoric mood [Recovered/Resolved]
  - Myoclonus [Recovered/Resolved]
  - Restlessness [Recovered/Resolved]
  - Hallucination, visual [Recovered/Resolved]
  - Gait disturbance [Recovered/Resolved]
  - Muscle rigidity [Recovered/Resolved]
  - Pyrexia [Recovered/Resolved]
  - General physical health deterioration [Recovered/Resolved]
  - Tremor [Recovered/Resolved]
  - Neuroleptic malignant syndrome [Recovered/Resolved]
  - Executive dysfunction [Recovered/Resolved]
  - Chills [Recovered/Resolved]
  - Memory impairment [Recovered/Resolved]
  - Hyperhidrosis [Recovered/Resolved]
  - Vision blurred [Recovered/Resolved]
  - Apraxia [Recovered/Resolved]
